FAERS Safety Report 10025725 (Version 2)
Quarter: 2014Q2

REPORT INFORMATION
  Report Type: Spontaneous
  Country: IT (occurrence: IT)
  Receive Date: 20140320
  Receipt Date: 20140403
  Transmission Date: 20141212
  Serious: Yes (Hospitalization, Other)
  Sender: FDA-Public Use
  Company Number: IT-ACTAVIS-2014-05076

PATIENT
  Age: 66 Year
  Sex: Male

DRUGS (3)
  1. OXALIPLATIN (UNKNOWN) [Suspect]
     Indication: COLON ADENOMA
     Dosage: 70 MG/SQ/CYCLIC
     Route: 065
     Dates: start: 20131209, end: 20140303
  2. ERBITUX [Concomitant]
     Indication: PRODUCT USED FOR UNKNOWN INDICATION
     Dosage: 250 MG, UNK
     Route: 065
  3. IRINOTECAN                         /01280202/ [Concomitant]
     Indication: PRODUCT USED FOR UNKNOWN INDICATION
     Dosage: 120 MG/SM
     Route: 065

REACTIONS (7)
  - Hyperhidrosis [Recovered/Resolved]
  - Hyperpyrexia [Recovered/Resolved]
  - Pyrexia [Recovered/Resolved]
  - Chills [Recovered/Resolved]
  - Atrial fibrillation [Recovered/Resolved]
  - Supraventricular extrasystoles [Recovered/Resolved]
  - Palpitations [Recovered/Resolved]
